FAERS Safety Report 6809619-1 (Version None)
Quarter: 2010Q2

REPORT INFORMATION
  Report Type: 
  Country: None (occurrence: None)
  Receive Date: 20100630
  Receipt Date: 20100618
  Transmission Date: 20101027
  Serious: Yes (Hospitalization, Other)
  Sender: FDA-Public Use
  Company Number: US-PFIZER INC-2010013868

PATIENT
  Sex: Male
  Weight: 61.234 kg

DRUGS (1)
  1. VFEND [Suspect]
     Indication: ASPERGILLOSIS
     Dosage: 300 MG, 2X/DAY
     Route: 048
     Dates: start: 20100101, end: 20100101

REACTIONS (6)
  - CHOKING [None]
  - HALLUCINATION [None]
  - HEPATIC FAILURE [None]
  - RENAL FAILURE [None]
  - VISUAL IMPAIRMENT [None]
  - WEIGHT DECREASED [None]
